FAERS Safety Report 10696971 (Version 7)
Quarter: 2015Q2

REPORT INFORMATION
  Report Type: Report from Study
  Country: US (occurrence: US)
  Receive Date: 20150108
  Receipt Date: 20150613
  Transmission Date: 20150821
  Serious: Yes (Hospitalization)
  Sender: FDA-Public Use
  Company Number: US-BIOGENIDEC-2014BI138534

PATIENT
  Age: 63 Year
  Sex: Female

DRUGS (4)
  1. TYSABRI [Suspect]
     Active Substance: NATALIZUMAB
     Indication: MULTIPLE SCLEROSIS
     Route: 042
     Dates: start: 20150311
  2. TYSABRI [Suspect]
     Active Substance: NATALIZUMAB
     Indication: MULTIPLE SCLEROSIS
     Route: 042
     Dates: end: 20141110
  3. TYSABRI [Suspect]
     Active Substance: NATALIZUMAB
     Indication: MULTIPLE SCLEROSIS
     Route: 042
     Dates: start: 20100113, end: 20140814
  4. TYSABRI [Suspect]
     Active Substance: NATALIZUMAB
     Indication: MULTIPLE SCLEROSIS
     Route: 042
     Dates: end: 20150409

REACTIONS (25)
  - Atrial fibrillation [Not Recovered/Not Resolved]
  - Renal failure [Recovered/Resolved]
  - Rash [Recovered/Resolved]
  - Herpes zoster [Recovered/Resolved]
  - Staphylococcal infection [Recovered/Resolved]
  - Aphasia [Recovered/Resolved]
  - Memory impairment [Recovered/Resolved]
  - Medical induction of coma [Recovered/Resolved]
  - Feeling abnormal [Recovered/Resolved]
  - Asthenia [Not Recovered/Not Resolved]
  - Rash pruritic [Recovered/Resolved]
  - Muscle twitching [Recovered/Resolved]
  - Immune system disorder [Recovered/Resolved]
  - Urinary tract infection [Not Recovered/Not Resolved]
  - Insomnia [Recovered/Resolved]
  - Musculoskeletal disorder [Not Recovered/Not Resolved]
  - Fall [Recovered/Resolved]
  - Diabetes mellitus [Not Recovered/Not Resolved]
  - Feeding disorder [Recovered/Resolved]
  - Cerebrovascular accident [Not Recovered/Not Resolved]
  - General physical health deterioration [Not Recovered/Not Resolved]
  - Loss of control of legs [Recovered/Resolved]
  - Balance disorder [Recovered/Resolved]
  - Gait disturbance [Not Recovered/Not Resolved]
  - General symptom [Not Recovered/Not Resolved]

NARRATIVE: CASE EVENT DATE: 2014
